FAERS Safety Report 20660104 (Version 2)
Quarter: 2022Q2

REPORT INFORMATION
  Report Type: Spontaneous
  Country: US (occurrence: US)
  Receive Date: 20220331
  Receipt Date: 20220613
  Transmission Date: 20220720
  Serious: Yes (Other)
  Sender: FDA-Public Use
  Company Number: US-BAYER-2022A046859

PATIENT
  Age: 32 Year
  Sex: Female

DRUGS (1)
  1. MIRENA [Suspect]
     Active Substance: LEVONORGESTREL
     Dosage: 20?G/DAY
     Route: 015
     Dates: start: 20200819, end: 20220330

REACTIONS (3)
  - Pregnancy with contraceptive device [Recovered/Resolved]
  - Abortion missed [None]
  - Drug ineffective [None]

NARRATIVE: CASE EVENT DATE: 20220330
